FAERS Safety Report 10374968 (Version 9)
Quarter: 2023Q4

REPORT INFORMATION
  Report Type: Report from Study
  Country: ES (occurrence: ES)
  Receive Date: 20140811
  Receipt Date: 20231107
  Transmission Date: 20240110
  Serious: Yes (Death, Hospitalization)
  Sender: FDA-Public Use
  Company Number: ES-SA-2014SA095168

PATIENT
  Age: 68 Year
  Sex: Female
  Weight: 89 kg

DRUGS (24)
  1. AFLIBERCEPT [Suspect]
     Active Substance: AFLIBERCEPT
     Indication: Colorectal cancer metastatic
     Dosage: 324 MG,QCY
     Route: 041
     Dates: start: 20140714, end: 20140714
  2. AFLIBERCEPT [Suspect]
     Active Substance: AFLIBERCEPT
     Dosage: 324 MG,QCY
     Route: 041
     Dates: start: 20140630, end: 20140630
  3. FLUOROURACIL [Suspect]
     Active Substance: FLUOROURACIL
     Indication: Colorectal cancer metastatic
     Dosage: 2232 MG,QCY
     Route: 041
     Dates: start: 20140611, end: 20140611
  4. FLUOROURACIL [Suspect]
     Active Substance: FLUOROURACIL
     Dosage: 1488 MG,QCY
     Route: 040
     Dates: start: 20140611, end: 20140611
  5. FLUOROURACIL [Suspect]
     Active Substance: FLUOROURACIL
     Dosage: 1488 MG,UNK
     Route: 040
     Dates: start: 20140714, end: 20140714
  6. FLUOROURACIL [Suspect]
     Active Substance: FLUOROURACIL
     Dosage: 2232 MG,QCY
     Route: 041
     Dates: start: 20140714, end: 20140714
  7. IRINOTECAN [Suspect]
     Active Substance: IRINOTECAN
     Indication: Colorectal cancer metastatic
     Dosage: 334.8 MG,QCY
     Route: 041
     Dates: start: 20140714, end: 20140714
  8. IRINOTECAN [Suspect]
     Active Substance: IRINOTECAN
     Dosage: 334.8 MG,QCY
     Route: 041
     Dates: start: 20140611, end: 20140611
  9. LEUCOVORIN [Suspect]
     Active Substance: LEUCOVORIN\LEUCOVORIN CALCIUM
     Indication: Colorectal cancer metastatic
     Dosage: 744 MG,QCY
     Route: 041
     Dates: start: 20140714, end: 20140714
  10. LEUCOVORIN [Suspect]
     Active Substance: LEUCOVORIN\LEUCOVORIN CALCIUM
     Dosage: 744 MG,QCY
     Route: 041
     Dates: start: 20140611, end: 20140611
  11. GRANISETRON [Concomitant]
     Active Substance: GRANISETRON
     Indication: Prophylaxis
     Dosage: UNK
     Dates: start: 20140611, end: 20140721
  12. ATROPINE [Concomitant]
     Active Substance: ATROPINE
     Indication: Prophylaxis
     Dosage: UNK
     Route: 065
     Dates: start: 20140611, end: 20140721
  13. METOCLOPRAMIDE [Concomitant]
     Active Substance: METOCLOPRAMIDE
     Dosage: UNK UNK,UNK
     Route: 065
     Dates: start: 20140619, end: 20140619
  14. METOCLOPRAMIDE [Concomitant]
     Active Substance: METOCLOPRAMIDE
     Dosage: UNK UNK,UNK
     Route: 065
     Dates: start: 20140611, end: 20140721
  15. MEGESTROL ACETATE [Concomitant]
     Active Substance: MEGESTROL ACETATE
     Dosage: UNK UNK,UNK
     Route: 065
     Dates: start: 20140714, end: 20140721
  16. LOPERAMIDE [Concomitant]
     Active Substance: LOPERAMIDE
     Dosage: UNK
     Dates: start: 20140611, end: 20140721
  17. OCTREOTIDE [Concomitant]
     Active Substance: OCTREOTIDE
     Dosage: UNK UNK,UNK
     Route: 065
     Dates: start: 20140721, end: 20140724
  18. MEGESTROL ACETATE [Concomitant]
     Active Substance: MEGESTROL ACETATE
     Dosage: UNK UNK,UNK
     Route: 065
     Dates: start: 20140714, end: 20140721
  19. PRIMPERAN [Concomitant]
     Active Substance: METOCLOPRAMIDE HYDROCHLORIDE
     Dosage: UNK UNK,UNK
     Route: 065
     Dates: start: 20140725, end: 20140726
  20. GRANULOCYTE COLONY-STIMULATING FACTOR NOS [Concomitant]
     Active Substance: GRANULOCYTE COLONY-STIMULATING FACTOR NOS
     Dosage: UNK UNK,UNK
     Route: 065
     Dates: start: 20140725, end: 20140726
  21. DOPAMINE [Concomitant]
     Active Substance: DOPAMINE HYDROCHLORIDE
     Dosage: UNK
     Route: 065
     Dates: start: 20140725, end: 20140726
  22. HALOPERIDOL [Concomitant]
     Active Substance: HALOPERIDOL
     Dosage: UNK UNK,UNK
     Route: 065
     Dates: start: 20140725, end: 20140726
  23. MIDAZOLAM [Concomitant]
     Active Substance: MIDAZOLAM
     Dosage: UNK
     Dates: start: 20140725, end: 20140726
  24. OMEPRAZOLE [Concomitant]
     Active Substance: OMEPRAZOLE
     Indication: Prophylaxis
     Dosage: UNK
     Route: 065
     Dates: start: 20140721, end: 20140726

REACTIONS (9)
  - Sepsis [Fatal]
  - Diarrhoea [Not Recovered/Not Resolved]
  - Diarrhoea [Recovered/Resolved]
  - Asthenia [Not Recovered/Not Resolved]
  - Stomatitis [Not Recovered/Not Resolved]
  - Flatulence [Not Recovered/Not Resolved]
  - Pyrexia [Recovered/Resolved]
  - Dyspnoea [Not Recovered/Not Resolved]
  - Abdominal pain [Not Recovered/Not Resolved]

NARRATIVE: CASE EVENT DATE: 20140714
